FAERS Safety Report 7344351-X (Version None)
Quarter: 2011Q1

REPORT INFORMATION
  Report Type: 
  Country: None (occurrence: None)
  Receive Date: 20110310
  Receipt Date: 20101207
  Transmission Date: 20110831
  Serious: No
  Sender: FDA-Public Use
  Company Number: A0898448A

PATIENT
  Age: 44 Year
  Sex: Female

DRUGS (2)
  1. NICORETTE [Suspect]
     Route: 002
  2. NICORETTE [Suspect]
     Route: 062

REACTIONS (2)
  - NICOTINE DEPENDENCE [None]
  - DRUG ADMINISTRATION ERROR [None]
